FAERS Safety Report 9099243 (Version 1)
Quarter: 2013Q1

REPORT INFORMATION
  Report Type: Spontaneous
  Country: US (occurrence: US)
  Receive Date: 20130213
  Receipt Date: 20130213
  Transmission Date: 20140127
  Serious: No
  Sender: FDA-Public Use
  Company Number: US-BAYER-2013-009318

PATIENT
  Age: 79 Year
  Sex: Female
  Weight: 61 kg

DRUGS (4)
  1. ALEVE LIQUID GELS [Suspect]
     Indication: ARTHRITIS
     Dosage: 1 DF, BID
     Route: 048
     Dates: start: 201204
  2. ALEVE CAPLET/TABLET,MIDOL EXTENDED RELIEF CAPLET [Suspect]
     Indication: ARTHRITIS
     Dosage: 1 DF, BID
     Route: 048
     Dates: start: 201204
  3. CALMAX [CALCIUM GLUCONATE] [Concomitant]
  4. B VITAMIN COMP [B5,B3,B6,B2,B1 HCL] [Concomitant]

REACTIONS (1)
  - Nocturia [Recovered/Resolved]
